FAERS Safety Report 17224430 (Version 2)
Quarter: 2020Q1

REPORT INFORMATION
  Report Type: Report from Study
  Country: CA (occurrence: CA)
  Receive Date: 20200102
  Receipt Date: 20200128
  Transmission Date: 20200409
  Serious: Yes (Other)
  Sender: FDA-Public Use
  Company Number: CA-BAYER-2019-213711

PATIENT
  Age: 83 Year
  Sex: Female

DRUGS (1)
  1. ADEMPAS [Suspect]
     Active Substance: RIOCIGUAT
     Indication: PULMONARY HYPERTENSION
     Dosage: 2.5 MG, TID
     Route: 048
     Dates: start: 20180730

REACTIONS (4)
  - Blood pressure decreased [Not Recovered/Not Resolved]
  - Weight decreased [Recovering/Resolving]
  - Blood pressure systolic decreased [None]
  - Muscle atrophy [Recovering/Resolving]

NARRATIVE: CASE EVENT DATE: 2019
